FAERS Safety Report 7207137-2 (Version None)
Quarter: 2011Q1

REPORT INFORMATION
  Report Type: 
  Country: None (occurrence: None)
  Receive Date: 20110103
  Receipt Date: 20101222
  Transmission Date: 20110831
  Serious: Yes (Other)
  Sender: FDA-Public Use
  Company Number: PHHY2010AU87911

PATIENT

DRUGS (7)
  1. ADRIAMYCIN PFS [Concomitant]
  2. TAXOTERE [Concomitant]
     Dosage: UNK
     Dates: start: 20090601
  3. CYCLOPHOSPHAMIDE [Concomitant]
  4. ZOMETA [Suspect]
     Indication: BREAST CANCER
     Dosage: UNK
     Route: 042
     Dates: start: 20060301
  5. ZOMETA [Suspect]
     Indication: METASTASES TO BONE
  6. TAMOXIFEN CITRATE [Concomitant]
     Dosage: UNK
     Dates: start: 20060301
  7. AREDIA [Concomitant]
     Indication: HYPERCALCAEMIA
     Dosage: 90 MG
     Route: 042
     Dates: start: 20060426

REACTIONS (5)
  - INTERVERTEBRAL DISC OPERATION [None]
  - HYPERCALCAEMIA [None]
  - BONE DISORDER [None]
  - PAIN [None]
  - OSTEONECROSIS OF JAW [None]
